FAERS Safety Report 15560129 (Version 2)
Quarter: 2018Q4

REPORT INFORMATION
  Report Type: Spontaneous
  Country: US (occurrence: US)
  Receive Date: 20181029
  Receipt Date: 20181106
  Transmission Date: 20190205
  Serious: Yes (Hospitalization, Other)
  Sender: FDA-Public Use
  Company Number: US-AUROBINDO-AUR-APL-2018-051497

PATIENT
  Age: 45 Year
  Sex: Female
  Weight: 100 kg

DRUGS (2)
  1. QUININE [Suspect]
     Active Substance: QUININE
     Indication: PRODUCT USED FOR UNKNOWN INDICATION
     Dosage: UNK
     Route: 065
  2. CITALOPRAM [Suspect]
     Active Substance: CITALOPRAM HYDROBROMIDE
     Indication: PRODUCT USED FOR UNKNOWN INDICATION
     Dosage: UNK
     Route: 065

REACTIONS (13)
  - Hypotension [Unknown]
  - Diastolic dysfunction [Unknown]
  - Lactic acidosis [Unknown]
  - Electrocardiogram QRS complex prolonged [Unknown]
  - Heart rate increased [Unknown]
  - Tachycardia [Unknown]
  - Shock [Unknown]
  - Cyanopsia [Recovered/Resolved]
  - Visual impairment [Recovered/Resolved]
  - Retinal toxicity [Unknown]
  - Seizure [Unknown]
  - Electrocardiogram QT prolonged [Unknown]
  - Intentional overdose [Unknown]
